FAERS Safety Report 6859934-0 (Version None)
Quarter: 2010Q3

REPORT INFORMATION
  Report Type: 
  Country: None (occurrence: None)
  Receive Date: 20100720
  Receipt Date: 20100707
  Transmission Date: 20110219
  Serious: Yes (Other)
  Sender: FDA-Public Use
  Company Number: PHHY2010MX01698

PATIENT
  Age: 72 Year
  Sex: Female

DRUGS (6)
  1. ACLASTA [Suspect]
     Indication: OSTEOPOROSIS
     Dosage: 5 MG/100 ML
     Route: 042
     Dates: start: 20080130
  2. ACLASTA [Suspect]
     Dosage: UNK
     Route: 042
     Dates: start: 20090301
  3. ACLASTA [Suspect]
     Dosage: UNK
     Dates: start: 20100301
  4. OMEPRAZOLE [Concomitant]
  5. MICARDIS HCT [Concomitant]
  6. ANGIOTROFIN (DILTIAZEM HYDROCHLORIDE) [Concomitant]

REACTIONS (7)
  - BACK PAIN [None]
  - DISLOCATION OF VERTEBRA [None]
  - HYPOAESTHESIA [None]
  - NERVE COMPRESSION [None]
  - NEURALGIA [None]
  - PAIN IN EXTREMITY [None]
  - VERTIGO [None]
